FAERS Safety Report 15550840 (Version 3)
Quarter: 2019Q2

REPORT INFORMATION
  Report Type: Spontaneous
  Country: FR (occurrence: FR)
  Receive Date: 20181025
  Receipt Date: 20190607
  Transmission Date: 20190711
  Serious: Yes (Other)
  Sender: FDA-Public Use
  Company Number: FR-PFIZER INC-2018422513

PATIENT
  Sex: Male

DRUGS (6)
  1. ABILIFY [Suspect]
     Active Substance: ARIPIPRAZOLE
     Dosage: 5 MG, UNK
     Route: 065
     Dates: start: 201806, end: 201806
  2. ABILIFY [Suspect]
     Active Substance: ARIPIPRAZOLE
     Dosage: 15 MG, UNK
     Route: 065
  3. EFFEXOR [Suspect]
     Active Substance: VENLAFAXINE HYDROCHLORIDE
     Dosage: UNK
     Route: 065
  4. ABILIFY [Suspect]
     Active Substance: ARIPIPRAZOLE
     Dosage: 10 MG, UNK
     Route: 065
     Dates: start: 2003
  5. ABILIFY [Suspect]
     Active Substance: ARIPIPRAZOLE
     Indication: SCHIZOID PERSONALITY DISORDER
     Dosage: 15 MG, UNK
     Route: 065
     Dates: start: 2003
  6. ABILIFY [Suspect]
     Active Substance: ARIPIPRAZOLE
     Dosage: 1 (UNSPECIFIED UNIT), DAILY (60 TO 80MG DAILY UNKNOWN WAY OF ADMINISTRATION)
     Route: 065

REACTIONS (16)
  - Autism spectrum disorder [Unknown]
  - Disorientation [Unknown]
  - Impaired driving ability [Unknown]
  - Thinking abnormal [Unknown]
  - Confusional state [Unknown]
  - Weight increased [Unknown]
  - Therapy cessation [Unknown]
  - Nervousness [Unknown]
  - Product use in unapproved indication [Unknown]
  - Hypersomnia [Unknown]
  - Drug tolerance decreased [Unknown]
  - Rebound effect [Unknown]
  - Depression [Unknown]
  - Cardiac disorder [Unknown]
  - Sedation [Unknown]
  - Crying [Recovered/Resolved]

NARRATIVE: CASE EVENT DATE: 2003
